FAERS Safety Report 4454596-4 (Version None)
Quarter: 2004Q3

REPORT INFORMATION
  Report Type: 
  Country: None (occurrence: None)
  Receive Date: 20040921
  Receipt Date: 20040910
  Transmission Date: 20050211
  Serious: Yes (Other)
  Sender: FDA-Public Use
  Company Number: 200418990GDDC

PATIENT
  Age: 23 Year
  Sex: Male

DRUGS (4)
  1. ANZEMET [Suspect]
     Indication: PROPHYLAXIS OF NAUSEA AND VOMITING
     Route: 042
     Dates: start: 20040706, end: 20040706
  2. FENTANYL [Concomitant]
     Dates: start: 20040706, end: 20040706
  3. MORPHINE [Concomitant]
     Dates: start: 20040706, end: 20040706
  4. PROPOFOL [Concomitant]
     Dates: start: 20040706, end: 20040706

REACTIONS (1)
  - DYSTONIA [None]
